FAERS Safety Report 8979293 (Version 1)
Quarter: 2012Q4

REPORT INFORMATION
  Report Type: 
  Country: US (occurrence: US)
  Receive Date: 20121221
  Receipt Date: 20121221
  Transmission Date: 20130627
  Serious: Yes (Other)
  Sender: FDA-Public Use
  Company Number: US-PFIZER INC-2012283440

PATIENT
  Age: 52 Year
  Sex: Male
  Weight: 92.97 kg

DRUGS (2)
  1. PREPARATION H COOLING GEL [Suspect]
     Indication: HEMORRHOIDS
     Dosage: UNK, once
     Route: 054
     Dates: start: 20121109, end: 20121109
  2. ONGLYZA [Concomitant]
     Indication: DIABETES
     Dosage: 5 mg, daily

REACTIONS (7)
  - Urinary tract infection [Unknown]
  - Wrong technique in drug usage process [Unknown]
  - Urine flow decreased [Unknown]
  - Bladder pain [Unknown]
  - Prostatic pain [Unknown]
  - Abdominal discomfort [Unknown]
  - Malaise [Unknown]
